FAERS Safety Report 10585025 (Version 1)
Quarter: 2014Q4

REPORT INFORMATION
  Report Type: Spontaneous
  Country: US (occurrence: None)
  Receive Date: 20141113
  Receipt Date: 20141113
  Transmission Date: 20150529
  Serious: Yes (Hospitalization)
  Sender: FDA-Public Use
  Company Number: 201411IM007394

PATIENT
  Sex: Male

DRUGS (2)
  1. PIRFENEX [Suspect]
     Active Substance: PIRFENIDONE
     Indication: IDIOPATHIC PULMONARY FIBROSIS
     Route: 048
  2. ESBRIET [Suspect]
     Active Substance: PIRFENIDONE
     Indication: IDIOPATHIC PULMONARY FIBROSIS
     Route: 048

REACTIONS (5)
  - Vomiting [None]
  - Asthenia [None]
  - Abdominal discomfort [None]
  - Nausea [None]
  - Aspiration [None]

NARRATIVE: CASE EVENT DATE: 20141016
